FAERS Safety Report 25969447 (Version 1)
Quarter: 2025Q4

REPORT INFORMATION
  Report Type: Spontaneous
  Country: EU (occurrence: EU)
  Receive Date: 20251028
  Receipt Date: 20251028
  Transmission Date: 20260118
  Serious: Yes (Other)
  Sender: AMGEN
  Company Number: None

PATIENT
  Age: 75 Year
  Sex: Female
  Weight: 93.6 kg

DRUGS (1)
  1. ADALIMUMAB [Suspect]
     Active Substance: ADALIMUMAB
     Indication: Rheumatic disorder
     Dosage: 40 MILLIGRAM, Q2WK
     Route: 065
     Dates: start: 20250809, end: 202508

REACTIONS (2)
  - Cardiac failure [Recovering/Resolving]
  - Condition aggravated [Recovering/Resolving]
